FAERS Safety Report 21178255 (Version 4)
Quarter: 2023Q1

REPORT INFORMATION
  Report Type: Spontaneous
  Country: AU (occurrence: AU)
  Receive Date: 20220805
  Receipt Date: 20230125
  Transmission Date: 20230417
  Serious: Yes (Hospitalization, Other)
  Sender: FDA-Public Use
  Company Number: AU-MLMSERVICE-20220726-3696460-1

PATIENT
  Age: 26 Month
  Sex: Male
  Weight: 12.5 kg

DRUGS (5)
  1. LIDOCAINE HYDROCHLORIDE [Suspect]
     Active Substance: LIDOCAINE HYDROCHLORIDE
     Indication: Pain
     Dosage: FREQ:{TOTAL};0.8 MG/KG
     Route: 042
  2. VALPROATE SODIUM [Concomitant]
     Active Substance: VALPROATE SODIUM
     Indication: Seizure
     Dosage: UNK
  3. STIRIPENTOL [Concomitant]
     Active Substance: STIRIPENTOL
     Indication: Seizure
     Dosage: UNK
  4. CANNABIDIOL [Concomitant]
     Active Substance: CANNABIDIOL
     Indication: Seizure
     Dosage: UNK
  5. CLOBAZAM [Concomitant]
     Active Substance: CLOBAZAM
     Indication: Seizure
     Dosage: UNK

REACTIONS (1)
  - Generalised tonic-clonic seizure [Recovered/Resolved]
